FAERS Safety Report 14790188 (Version 1)
Quarter: 2018Q2

REPORT INFORMATION
  Report Type: Spontaneous
  Country: DE (occurrence: DE)
  Receive Date: 20180423
  Receipt Date: 20180423
  Transmission Date: 20180711
  Serious: Yes (Other)
  Sender: FDA-Public Use
  Company Number: PHHY2018DE066727

PATIENT
  Sex: Female

DRUGS (1)
  1. VALPROIC ACID. [Suspect]
     Active Substance: VALPROIC ACID
     Indication: PRODUCT USED FOR UNKNOWN INDICATION
     Route: 003

REACTIONS (8)
  - Ataxia [Unknown]
  - Motor dysfunction [Unknown]
  - Generalised tonic-clonic seizure [Recovered/Resolved]
  - Drug ineffective [Unknown]
  - Fall [Unknown]
  - Adverse event [Unknown]
  - Condition aggravated [Unknown]
  - Therapeutic response decreased [Unknown]
